FAERS Safety Report 4658943-X (Version None)
Quarter: 2005Q2

REPORT INFORMATION
  Report Type: 
  Country: None (occurrence: None)
  Receive Date: 20050509
  Receipt Date: 20050427
  Transmission Date: 20051028
  Serious: Yes (Hospitalization)
  Sender: FDA-Public Use
  Company Number: 04P-062-0284944-01

PATIENT
  Age: 49 Year
  Sex: Female
  Weight: 63 kg

DRUGS (5)
  1. HUMIRA [Suspect]
     Indication: RHEUMATOID ARTHRITIS
     Dosage: 40 MG, 1 IN 2 WK, SUBCUTANEOUS
     Route: 058
     Dates: start: 20031209, end: 20041117
  2. METHOTREXATE [Concomitant]
  3. PREDNISOLONE [Concomitant]
  4. CALCIFEN D [Concomitant]
  5. COMMERCIAL HUMIRA [Concomitant]

REACTIONS (41)
  - ANAEMIA [None]
  - ANTIBODY TEST NEGATIVE [None]
  - ANTINUCLEAR ANTIBODY [None]
  - ASPIRATION [None]
  - ASTHENIA [None]
  - BLOOD CALCIUM [None]
  - BLOOD IMMUNOGLOBULIN M [None]
  - BLOOD PHOSPHORUS [None]
  - BURSITIS [None]
  - CERVICAL RIB [None]
  - DEFORMITY [None]
  - DISABILITY [None]
  - EFFUSION [None]
  - ELECTROCARDIOGRAM [None]
  - FINGER DEFORMITY [None]
  - FLAT FEET [None]
  - GRIP STRENGTH [None]
  - HEPATOCELLULAR DAMAGE [None]
  - HOSPITALISATION [None]
  - HYPERTHERMIA [None]
  - HYPONATRAEMIA [None]
  - INJECTION [None]
  - INVESTIGATION [None]
  - JOINT SWELLING [None]
  - OEDEMA PERIPHERAL [None]
  - PAIN [None]
  - PARALYSIS [None]
  - REHABILITATION THERAPY [None]
  - RHEUMATOID ARTHRITIS [None]
  - SCAR [None]
  - SINUS RHYTHM [None]
  - SPINAL OSTEOARTHRITIS [None]
  - SURGERY [None]
  - SWELLING [None]
  - SYNOVITIS [None]
  - TENDERNESS [None]
  - TENDONITIS [None]
  - TENOSYNOVITIS [None]
  - VITAMIN D [None]
  - WEIGHT [None]
  - X-RAY [None]
